FAERS Safety Report 8918426 (Version 1)
Quarter: 2012Q4

REPORT INFORMATION
  Report Type: 
  Country: US (occurrence: US)
  Receive Date: 20121120
  Receipt Date: 20121120
  Transmission Date: 20130627
  Serious: No
  Sender: FDA-Public Use
  Company Number: US-ASTRAZENECA-2012SE26886

PATIENT
  Age: 77 Year
  Sex: Male

DRUGS (1)
  1. NEXIUM [Suspect]
     Route: 048
     Dates: start: 201112

REACTIONS (2)
  - Laziness [Unknown]
  - Somnolence [Unknown]
